FAERS Safety Report 23268057 (Version 2)
Quarter: 2023Q4

REPORT INFORMATION
  Report Type: Spontaneous
  Country: JP (occurrence: JP)
  Receive Date: 20231206
  Receipt Date: 20231214
  Transmission Date: 20240110
  Serious: Yes (Other)
  Sender: FDA-Public Use
  Company Number: JP-BAYER-2023A174789

PATIENT
  Age: 48 Year
  Sex: Female

DRUGS (1)
  1. MIRENA [Suspect]
     Active Substance: LEVONORGESTREL
     Indication: Dysmenorrhoea
     Dosage: 20?G/DAY
     Route: 015
     Dates: start: 20190704, end: 20231026

REACTIONS (3)
  - Device breakage [Recovered/Resolved]
  - Complication of device removal [None]
  - Device expulsion [None]

NARRATIVE: CASE EVENT DATE: 20231026
